FAERS Safety Report 9779702 (Version 2)
Quarter: 2014Q1

REPORT INFORMATION
  Report Type: Spontaneous
  Country: US (occurrence: US)
  Receive Date: 20131223
  Receipt Date: 20140103
  Transmission Date: 20141002
  Serious: Yes (Death, Hospitalization)
  Sender: FDA-Public Use
  Company Number: US-GLAXOSMITHKLINE-A1033139A

PATIENT
  Age: 67 Year
  Sex: Male

DRUGS (7)
  1. AVANDIA [Suspect]
     Indication: DIABETES MELLITUS
     Dosage: 8MG PER DAY
     Route: 048
     Dates: start: 20050218, end: 20080625
  2. LITHOSTAT [Concomitant]
  3. METFORMIN HCL [Concomitant]
  4. LISINOPRIL [Concomitant]
  5. TOPROL XL [Concomitant]
  6. COMBIVENT [Concomitant]
  7. B12 [Concomitant]

REACTIONS (4)
  - Arteriosclerosis [Fatal]
  - Cardiac arrest [Unknown]
  - Vascular occlusion [Unknown]
  - Peripheral vascular disorder [Unknown]
